FAERS Safety Report 11225267 (Version 1)
Quarter: 2015Q2

REPORT INFORMATION
  Report Type: Spontaneous
  Country: US (occurrence: US)
  Receive Date: 20150629
  Receipt Date: 20150629
  Transmission Date: 20150821
  Serious: Yes (Other)
  Sender: FDA-Public Use
  Company Number: US-PFIZER INC-2015214371

PATIENT
  Age: 82 Year
  Sex: Female
  Weight: 90 kg

DRUGS (2)
  1. LIPITOR [Suspect]
     Active Substance: ATORVASTATIN CALCIUM
     Dosage: 20 MG, UNK
     Dates: start: 201503
  2. LIPITOR [Suspect]
     Active Substance: ATORVASTATIN CALCIUM
     Indication: BLOOD CHOLESTEROL
     Dosage: 10 MG, UNK
     Dates: start: 2000

REACTIONS (5)
  - Muscle spasms [Unknown]
  - Diabetes mellitus [Not Recovered/Not Resolved]
  - Cardiac valve disease [Recovered/Resolved]
  - Renal disorder [Recovered/Resolved]
  - Hypertension [Recovered/Resolved]

NARRATIVE: CASE EVENT DATE: 201410
